FAERS Safety Report 20866061 (Version 1)
Quarter: 2022Q2

REPORT INFORMATION
  Report Type: Spontaneous
  Country: JP (occurrence: None)
  Receive Date: 20220524
  Receipt Date: 20220524
  Transmission Date: 20220721
  Serious: Yes (Other)
  Sender: FDA-Public Use
  Company Number: JP-Orion Corporation ORION PHARMA-ENTC2022-0089

PATIENT
  Age: 7 Decade
  Sex: Male

DRUGS (1)
  1. STALEVO [Suspect]
     Active Substance: CARBIDOPA\ENTACAPONE\LEVODOPA
     Indication: Parkinson^s disease
     Dosage: LEVODOPA UNK; CARBIDOPA HYDRATE UNK; ENTACAPONE 100 MG
     Route: 048

REACTIONS (3)
  - Parkinson^s disease [Unknown]
  - Dysphagia [Unknown]
  - Wrong technique in product usage process [Unknown]
